FAERS Safety Report 7817180-8 (Version None)
Quarter: 2011Q4

REPORT INFORMATION
  Report Type: 
  Country: None (occurrence: None)
  Receive Date: 20111017
  Receipt Date: 20111017
  Transmission Date: 20120403
  Serious: Yes (Other)
  Sender: FDA-Public Use
  Company Number: None

PATIENT
  Age: 42 Year
  Sex: Male
  Weight: 82.553 kg

DRUGS (1)
  1. LIPITOR [Suspect]
     Indication: BLOOD CHOLESTEROL INCREASED
     Dosage: 10 MG
     Route: 048
     Dates: start: 20070101, end: 20111001

REACTIONS (7)
  - IRRITABILITY [None]
  - DEPRESSION [None]
  - HEART RATE IRREGULAR [None]
  - PERSONALITY CHANGE [None]
  - CHEST PAIN [None]
  - INSOMNIA [None]
  - AMNESIA [None]
